FAERS Safety Report 10856242 (Version 1)
Quarter: 2015Q1

REPORT INFORMATION
  Report Type: Spontaneous
  Country: GR (occurrence: GR)
  Receive Date: 20150223
  Receipt Date: 20150223
  Transmission Date: 20150721
  Serious: Yes (Hospitalization)
  Sender: FDA-Public Use
  Company Number: GR-MYLANLABS-2015M1005510

PATIENT

DRUGS (1)
  1. DONEPEZIL [Suspect]
     Active Substance: DONEPEZIL
     Indication: DEMENTIA ALZHEIMER^S TYPE
     Dosage: 30 MG, QD
     Route: 065

REACTIONS (3)
  - Myoclonus [Recovered/Resolved]
  - Accidental overdose [Recovered/Resolved]
  - Drug administration error [Recovered/Resolved]
